FAERS Safety Report 16568284 (Version 6)
Quarter: 2021Q2

REPORT INFORMATION
  Report Type: Spontaneous
  Country: FR (occurrence: FR)
  Receive Date: 20190712
  Receipt Date: 20210422
  Transmission Date: 20210716
  Serious: Yes (Hospitalization, Other)
  Sender: FDA-Public Use
  Company Number: PHHY2019FR157157

PATIENT
  Age: 20 Year
  Sex: Female

DRUGS (25)
  1. INFLIXIMAB [Suspect]
     Active Substance: INFLIXIMAB
     Dosage: 10 MG/KG
     Route: 065
  2. PREDNISONE. [Suspect]
     Active Substance: PREDNISONE
     Dosage: 12 MG, QD
     Route: 065
     Dates: start: 20170803
  3. SYLVANT [Suspect]
     Active Substance: SILTUXIMAB
     Dosage: INFUSION 4
     Route: 042
     Dates: start: 20170330
  4. SYLVANT [Suspect]
     Active Substance: SILTUXIMAB
     Dosage: INFUSION 5
     Route: 042
     Dates: start: 20170420
  5. SYLVANT [Suspect]
     Active Substance: SILTUXIMAB
     Dosage: INFUSION 7
     Route: 042
     Dates: start: 20170601
  6. INFLIXIMAB [Suspect]
     Active Substance: INFLIXIMAB
     Indication: STILL^S DISEASE
     Dosage: 5 MG/KG
     Route: 065
  7. SYLVANT [Suspect]
     Active Substance: SILTUXIMAB
     Indication: JUVENILE IDIOPATHIC ARTHRITIS
     Dosage: 690 MILLIGRAM PER INFUSION, INFUSION 1
     Route: 042
     Dates: start: 20170127
  8. METHOTREXATE. [Suspect]
     Active Substance: METHOTREXATE
     Dosage: 30 MG, QW
     Route: 058
  9. METHOTREXATE. [Suspect]
     Active Substance: METHOTREXATE
     Indication: STILL^S DISEASE
     Dosage: UNK
     Route: 065
     Dates: start: 201612
  10. SYLVANT [Suspect]
     Active Substance: SILTUXIMAB
     Dosage: INFUSION 8
     Route: 042
     Dates: start: 20170622
  11. SYLVANT [Suspect]
     Active Substance: SILTUXIMAB
     Dosage: INFUSION 9
     Route: 042
     Dates: start: 20170713
  12. ETOPOSIDE. [Suspect]
     Active Substance: ETOPOSIDE
     Indication: STILL^S DISEASE
     Dosage: 100 MG
     Route: 042
  13. TOCILIZUMAB. [Suspect]
     Active Substance: TOCILIZUMAB
     Indication: STILL^S DISEASE
     Dosage: 8 MG/KG
     Route: 042
  14. ANAKINRA [Suspect]
     Active Substance: ANAKINRA
     Dosage: 100 MG, QD
     Route: 065
  15. CANAKINUMAB. [Suspect]
     Active Substance: CANAKINUMAB
     Indication: STILL^S DISEASE
     Dosage: 150 MG, QMO
     Route: 065
  16. SYLVANT [Suspect]
     Active Substance: SILTUXIMAB
     Indication: STILL^S DISEASE
     Dosage: INFUSION 2
     Route: 042
     Dates: start: 20170217
  17. SYLVANT [Suspect]
     Active Substance: SILTUXIMAB
     Dosage: INFUSION 3
     Route: 042
     Dates: start: 20170309
  18. SYLVANT [Suspect]
     Active Substance: SILTUXIMAB
     Dosage: INFUSION 10
     Route: 042
     Dates: start: 20170803
  19. ANAKINRA [Suspect]
     Active Substance: ANAKINRA
     Indication: STILL^S DISEASE
     Dosage: 200 MG, QD
     Route: 065
     Dates: start: 201612
  20. PREDNISONE. [Suspect]
     Active Substance: PREDNISONE
     Dosage: REDUCED TO 15 MG, OD
     Route: 065
  21. METHYLPREDNISOLONE. [Suspect]
     Active Substance: METHYLPREDNISOLONE
     Indication: STILL^S DISEASE
     Dosage: UNK
     Route: 042
  22. PREDNISONE. [Suspect]
     Active Substance: PREDNISONE
     Indication: STILL^S DISEASE
     Dosage: 45 MG, QD (0.6 MG/KG OF BODY WEIGHT)
     Route: 065
  23. TOCILIZUMAB. [Suspect]
     Active Substance: TOCILIZUMAB
     Dosage: 162 MG, QW
     Route: 058
     Dates: start: 20160803
  24. METHOTREXATE. [Suspect]
     Active Substance: METHOTREXATE
     Dosage: 20 MG, QW
     Route: 058
  25. SYLVANT [Suspect]
     Active Substance: SILTUXIMAB
     Dosage: INFUSION 6
     Route: 042
     Dates: start: 20170511

REACTIONS (9)
  - Cell death [Recovered/Resolved]
  - Treatment failure [Unknown]
  - Off label use [Unknown]
  - Cushing^s syndrome [Unknown]
  - Haemophagocytic lymphohistiocytosis [Recovered/Resolved]
  - Hypertriglyceridaemia [Recovering/Resolving]
  - Drug ineffective [Unknown]
  - Drug dependence [Unknown]
  - Product use in unapproved indication [Unknown]

NARRATIVE: CASE EVENT DATE: 2017
